FAERS Safety Report 13954095 (Version 1)
Quarter: 2017Q3

REPORT INFORMATION
  Report Type: Spontaneous
  Country: US (occurrence: None)
  Receive Date: 20170909
  Receipt Date: 20170909
  Transmission Date: 20171128
  Serious: Yes (Hospitalization)
  Sender: FDA-Public Use
  Company Number: None

PATIENT
  Age: 69 Year
  Sex: Male

DRUGS (1)
  1. VOTRIENT [Suspect]
     Active Substance: PAZOPANIB HYDROCHLORIDE
     Route: 048
     Dates: start: 20170815, end: 20170820

REACTIONS (4)
  - Weight decreased [None]
  - Renal failure [None]
  - Acute kidney injury [None]
  - Hepatic failure [None]

NARRATIVE: CASE EVENT DATE: 20170820
